FAERS Safety Report 24533341 (Version 2)
Quarter: 2024Q4

REPORT INFORMATION
  Report Type: Spontaneous
  Country: US (occurrence: US)
  Receive Date: 20241022
  Receipt Date: 20241119
  Transmission Date: 20250115
  Serious: Yes (Other)
  Sender: CATALYST PHARMA
  Company Number: US-CATALYST PHARMACEUTICALS-US-CATA-24-01176

PATIENT
  Age: 6 Year
  Sex: Male
  Weight: 41.891 kg

DRUGS (4)
  1. AGAMREE [Suspect]
     Active Substance: VAMOROLONE
     Indication: Duchenne muscular dystrophy
     Dosage: 6.2 ML ONCE DAILY
     Route: 048
     Dates: start: 20241008
  2. CLONIDINE [Concomitant]
     Active Substance: CLONIDINE
     Indication: Product used for unknown indication
     Dosage: 0.1 MG AS NEEDED
     Route: 065
  3. FAMOTIDINE [Concomitant]
     Active Substance: FAMOTIDINE
     Indication: Product used for unknown indication
     Dosage: 10 MG DAILY
     Route: 065
  4. IMMUNE SUPPORT [Concomitant]
     Indication: Product used for unknown indication
     Dosage: DAILY
     Route: 065

REACTIONS (5)
  - Physical assault [Unknown]
  - Homicidal ideation [Unknown]
  - Head banging [Unknown]
  - Epistaxis [Unknown]
  - Behaviour disorder [Unknown]

NARRATIVE: CASE EVENT DATE: 20241014
